FAERS Safety Report 7094853-9 (Version None)
Quarter: 2010Q4

REPORT INFORMATION
  Report Type: 
  Country: None (occurrence: None)
  Receive Date: 20101111
  Receipt Date: 20101102
  Transmission Date: 20110411
  Serious: Yes (Hospitalization)
  Sender: FDA-Public Use
  Company Number: US-BIOGENIDEC-2010BI035618

PATIENT
  Age: 53 Year
  Sex: Female

DRUGS (2)
  1. AVONEX [Suspect]
     Indication: MULTIPLE SCLEROSIS
     Route: 030
     Dates: start: 20100509
  2. NARCOTICS (NOS) [Concomitant]

REACTIONS (5)
  - BLINDNESS [None]
  - CEREBRAL ATROPHY [None]
  - CYSTITIS [None]
  - HEART RATE DECREASED [None]
  - OVERDOSE [None]
